FAERS Safety Report 18464965 (Version 1)
Quarter: 2020Q4

REPORT INFORMATION
  Report Type: Report from Study
  Country: JP (occurrence: JP)
  Receive Date: 20201105
  Receipt Date: 20201105
  Transmission Date: 20210114
  Serious: Yes (Other)
  Sender: FDA-Public Use
  Company Number: JP-CELLTRION INC.-2020JP019173

PATIENT

DRUGS (7)
  1. OTEZLA [Concomitant]
     Active Substance: APREMILAST
     Dosage: UNK
     Dates: start: 20191115
  2. COMCLO [Concomitant]
     Active Substance: CLOBETASOL PROPIONATE
     Dosage: UNK
     Dates: start: 20180501
  3. CALONAL [Concomitant]
     Active Substance: ACETAMINOPHEN
     Dosage: UNK
     Dates: start: 20151120, end: 20190926
  4. INFLIXIMAB BS FOR I.V. INFUSION100 MG [NK] [Suspect]
     Active Substance: INFLIXIMAB
     Indication: PSORIASIS
     Dosage: 300 MG, QD (EVERY ADMINISTRATION)
     Route: 041
     Dates: start: 20190926, end: 20190926
  5. DOVOBET [Concomitant]
     Active Substance: BETAMETHASONE\CALCIPOTRIENE
     Dosage: UNK
     Dates: start: 20170919
  6. XYZAL [Concomitant]
     Active Substance: LEVOCETIRIZINE DIHYDROCHLORIDE
     Indication: PSORIASIS
     Dosage: UNK
     Dates: start: 20131225
  7. DRENISON [Concomitant]
     Active Substance: FLURANDRENOLIDE
     Dosage: UNK
     Dates: start: 20181002

REACTIONS (2)
  - Underdose [Unknown]
  - Interstitial lung disease [Recovered/Resolved]

NARRATIVE: CASE EVENT DATE: 20191002
